FAERS Safety Report 9842114 (Version 1)
Quarter: 2014Q1

REPORT INFORMATION
  Report Type: Spontaneous
  Country: BR (occurrence: BR)
  Receive Date: 20140124
  Receipt Date: 20140124
  Transmission Date: 20141002
  Serious: Yes (Hospitalization, Other)
  Sender: FDA-Public Use
  Company Number: BR-PFIZER INC-2014019717

PATIENT
  Age: 64 Year
  Sex: Female

DRUGS (7)
  1. LYRICA [Suspect]
     Indication: SPINAL DISORDER
     Dosage: 1 CAPSULE OF STRENGTH 75 MG, 2X/DAY
     Dates: start: 2010
  2. LYRICA [Suspect]
     Indication: INTERVERTEBRAL DISC PROTRUSION
  3. LYRICA [Suspect]
     Indication: SCIATICA
  4. ENALAPRIL [Concomitant]
     Indication: HYPERTENSION
     Dosage: 1 (UNSPECIFIED IF CAPSULE OR TABLET), 1X/DAY
     Dates: start: 1968
  5. CYMBALTA [Concomitant]
     Indication: DEPRESSION
     Dosage: 1 (UNSPECIFIED IF CAPSULE OR TABLET), 2X/DAY
     Dates: start: 2008
  6. INSULIN [Concomitant]
     Indication: DIABETES MELLITUS
     Dosage: UNSPECIFIED DOSE, 2X/DAY
     Dates: start: 2006
  7. METFORMIN [Concomitant]
     Indication: DIABETES MELLITUS
     Dosage: 1 (UNSPECIFIED IF CAPSULE OR TABLET), 2X/DAY
     Dates: start: 2006

REACTIONS (4)
  - Off label use [Not Recovered/Not Resolved]
  - Pain in extremity [Unknown]
  - Spinal pain [Unknown]
  - Thyroid disorder [Unknown]
